FAERS Safety Report 4676571-7 (Version None)
Quarter: 2005Q2

REPORT INFORMATION
  Report Type: 
  Country: None (occurrence: None)
  Receive Date: 20050526
  Receipt Date: 20050520
  Transmission Date: 20051028
  Serious: Yes (Hospitalization)
  Sender: FDA-Public Use
  Company Number: GXKR2005PL01103

PATIENT
  Age: 21 Year
  Sex: Male
  Weight: 80 kg

DRUGS (2)
  1. KETONAL (NGX)(KETOPROFEN) CAPSULE [Suspect]
     Indication: PAIN IN EXTREMITY
     Dosage: 50 MG, ORAL
     Route: 048
  2. NUTRITION SUPPLEMENT (NUTRITION SUPPLEMENTS) [Concomitant]

REACTIONS (6)
  - CONJUNCTIVITIS [None]
  - DYSPNOEA [None]
  - GENERAL PHYSICAL HEALTH DETERIORATION [None]
  - PYREXIA [None]
  - TOXIC EPIDERMAL NECROLYSIS [None]
  - URTICARIA [None]
